FAERS Safety Report 7496659-5 (Version None)
Quarter: 2011Q2

REPORT INFORMATION
  Report Type: 
  Country: None (occurrence: None)
  Receive Date: 20110523
  Receipt Date: 20110516
  Transmission Date: 20111010
  Serious: Yes (Other)
  Sender: FDA-Public Use
  Company Number: A0927981A

PATIENT
  Age: 20 Year
  Sex: Female

DRUGS (2)
  1. PROMACTA [Suspect]
     Indication: EVANS SYNDROME
  2. IMMUNE GLOBULIN INTRAVENOUS (HUMAN) [Concomitant]

REACTIONS (1)
  - PULMONARY EMBOLISM [None]
